FAERS Safety Report 5846093-6 (Version None)
Quarter: 2008Q3

REPORT INFORMATION
  Report Type: 
  Country: None (occurrence: None)
  Receive Date: 20080813
  Receipt Date: 20080731
  Transmission Date: 20090109
  Serious: No
  Sender: FDA-Public Use
  Company Number: US024256

PATIENT
  Sex: Female

DRUGS (2)
  1. FENTORA [Suspect]
     Indication: PAIN
     Dosage: 400 UG QID UNKNOWN
     Dates: start: 20070101
  2. DURAGESIC-100 [Concomitant]

REACTIONS (2)
  - CIRCUMSTANCE OR INFORMATION CAPABLE OF LEADING TO MEDICATION ERROR [None]
  - PHARMACEUTICAL PRODUCT COMPLAINT [None]
